FAERS Safety Report 8814659 (Version 1)
Quarter: 2012Q4

REPORT INFORMATION
  Report Type: 
  Country: US (occurrence: US)
  Receive Date: 20120928
  Receipt Date: 20120928
  Transmission Date: 20130627
  Serious: No
  Sender: FDA-Public Use
  Company Number: US-009507513-1209USA008500

PATIENT
  Age: 25 Year
  Sex: Female
  Weight: 68.27 kg

DRUGS (2)
  1. NUVARING [Suspect]
     Indication: CONTRACEPTION
     Dosage: 3 weeks in 1 week out
     Route: 067
     Dates: start: 2010
  2. XANAX [Concomitant]
     Dosage: UNK, qd

REACTIONS (2)
  - Menorrhagia [Unknown]
  - Hypomenorrhoea [Unknown]
